FAERS Safety Report 23837417 (Version 2)
Quarter: 2024Q2

REPORT INFORMATION
  Report Type: Other
  Country: US (occurrence: None)
  Receive Date: 20240509
  Receipt Date: 20240514
  Transmission Date: 20240716
  Serious: Yes (Death)
  Sender: FDA-Public Use
  Company Number: US-ROCHE-3560629

PATIENT
  Age: 86 Year
  Sex: Male

DRUGS (3)
  1. ESBRIET [Suspect]
     Active Substance: PIRFENIDONE
     Indication: Idiopathic interstitial pneumonia
     Dosage: TAKE 1 TABLET BY MOUTH 3 TIMES A DAY
     Route: 048
     Dates: start: 20230919
  2. LOSARTAN [Concomitant]
     Active Substance: LOSARTAN
     Dosage: 50MG/D
  3. METFORMIN [Concomitant]
     Active Substance: METFORMIN HYDROCHLORIDE

REACTIONS (1)
  - Death [Fatal]
